FAERS Safety Report 19079651 (Version 5)
Quarter: 2022Q4

REPORT INFORMATION
  Report Type: Spontaneous
  Country: US (occurrence: None)
  Receive Date: 20210331
  Receipt Date: 20221201
  Transmission Date: 20230113
  Serious: Yes (Hospitalization, Disabling, Other)
  Sender: FDA-Public Use
  Company Number: 2021A231660

PATIENT
  Age: 665 Month
  Sex: Male
  Weight: 102.1 kg

DRUGS (74)
  1. FARXIGA [Suspect]
     Active Substance: DAPAGLIFLOZIN PROPANEDIOL
     Indication: Type 2 diabetes mellitus
     Route: 048
     Dates: start: 20140902
  2. FARXIGA [Suspect]
     Active Substance: DAPAGLIFLOZIN PROPANEDIOL
     Indication: Weight decreased
     Route: 048
     Dates: start: 20140902
  3. FARXIGA [Suspect]
     Active Substance: DAPAGLIFLOZIN PROPANEDIOL
     Indication: Blood pressure decreased
     Route: 048
     Dates: start: 20140902
  4. FARXIGA [Suspect]
     Active Substance: DAPAGLIFLOZIN PROPANEDIOL
     Indication: Type 2 diabetes mellitus
     Route: 048
     Dates: start: 20161126
  5. FARXIGA [Suspect]
     Active Substance: DAPAGLIFLOZIN PROPANEDIOL
     Indication: Weight decreased
     Route: 048
     Dates: start: 20161126
  6. FARXIGA [Suspect]
     Active Substance: DAPAGLIFLOZIN PROPANEDIOL
     Indication: Blood pressure decreased
     Route: 048
     Dates: start: 20161126
  7. FARXIGA [Suspect]
     Active Substance: DAPAGLIFLOZIN PROPANEDIOL
     Indication: Type 2 diabetes mellitus
     Dosage: 5 MG. 10 MG.
     Route: 048
     Dates: start: 2014, end: 2017
  8. FARXIGA [Suspect]
     Active Substance: DAPAGLIFLOZIN PROPANEDIOL
     Indication: Weight decreased
     Dosage: 5 MG. 10 MG.
     Route: 048
     Dates: start: 2014, end: 2017
  9. FARXIGA [Suspect]
     Active Substance: DAPAGLIFLOZIN PROPANEDIOL
     Indication: Blood pressure decreased
     Dosage: 5 MG. 10 MG.
     Route: 048
     Dates: start: 2014, end: 2017
  10. FARXIGA [Suspect]
     Active Substance: DAPAGLIFLOZIN PROPANEDIOL
     Indication: Type 2 diabetes mellitus
     Route: 048
     Dates: end: 2017
  11. FARXIGA [Suspect]
     Active Substance: DAPAGLIFLOZIN PROPANEDIOL
     Indication: Weight decreased
     Route: 048
     Dates: end: 2017
  12. FARXIGA [Suspect]
     Active Substance: DAPAGLIFLOZIN PROPANEDIOL
     Indication: Blood pressure decreased
     Route: 048
     Dates: end: 2017
  13. XIGDUO XR [Suspect]
     Active Substance: DAPAGLIFLOZIN PROPANEDIOL\METFORMIN HYDROCHLORIDE
     Indication: Type 2 diabetes mellitus
     Dosage: 10 MG/1000 MG
     Route: 048
     Dates: start: 2016
  14. GLUCOPHAGE [Concomitant]
     Active Substance: METFORMIN HYDROCHLORIDE
     Route: 048
     Dates: start: 20161126
  15. CINNAMON [Concomitant]
     Active Substance: CINNAMON
     Route: 065
     Dates: start: 20161126
  16. PRINIVIL [Concomitant]
     Active Substance: LISINOPRIL
     Route: 048
     Dates: start: 20161126
  17. TENORMIN [Concomitant]
     Active Substance: ATENOLOL
  18. AMARYL [Concomitant]
     Active Substance: GLIMEPIRIDE
     Route: 048
     Dates: start: 20161126
  19. AUGMENTIN [Concomitant]
     Active Substance: AMOXICILLIN\CLAVULANATE POTASSIUM
  20. ROXICODONE [Concomitant]
     Active Substance: OXYCODONE HYDROCHLORIDE
     Dosage: 5.0MG EVERY 4 - 6 HOURS
     Route: 048
     Dates: start: 20161126
  21. ATROPINE [Concomitant]
     Active Substance: ATROPINE
  22. CALCIUM GLUCONATE [Concomitant]
     Active Substance: CALCIUM GLUCONATE
  23. DEXTROSE [Concomitant]
     Active Substance: DEXTROSE
  24. DOCUSATE SODIUM [Concomitant]
     Active Substance: DOCUSATE SODIUM
  25. FENTANYL [Concomitant]
     Active Substance: FENTANYL
  26. HEPARIN [Concomitant]
     Active Substance: HEPARIN SODIUM
  27. INSULIN NOS [Concomitant]
     Active Substance: INSULIN NOS
  28. MAGNESIUM SULFATE [Concomitant]
     Active Substance: MAGNESIUM SULFATE
  29. PANTOPRAZOLE [Concomitant]
     Active Substance: PANTOPRAZOLE
  30. PIPERCILLIN-TRAZOBACTUM [Concomitant]
  31. ELECTROLYTES NOS [Concomitant]
     Active Substance: ELECTROLYTES NOS
  32. POTASSIUM CHLORIDE [Concomitant]
     Active Substance: POTASSIUM CHLORIDE
  33. PYRIDOXAL PHOSPHATE/MECOBALAMIN/(6S)-5-METHYLTETRAHYDROFOLATE GLUCOSAM [Concomitant]
  34. GLYCOPYRROLATE [Concomitant]
     Active Substance: GLYCOPYRROLATE
  35. LIDOCAINE [Concomitant]
     Active Substance: LIDOCAINE
  36. HYDROMORPHONE [Concomitant]
     Active Substance: HYDROMORPHONE
  37. MIDAZOLAM [Concomitant]
     Active Substance: MIDAZOLAM
  38. NEOSTIGMINE [Concomitant]
     Active Substance: NEOSTIGMINE
  39. ONDANSETRON [Concomitant]
     Active Substance: ONDANSETRON
  40. VANCOMYCIN [Concomitant]
     Active Substance: VANCOMYCIN
  41. AMPICILLIN [Concomitant]
     Active Substance: AMPICILLIN
  42. CIPROFLOXACIN [Concomitant]
     Active Substance: CIPROFLOXACIN
  43. TIZANIDINE [Concomitant]
     Active Substance: TIZANIDINE
     Indication: Pain
  44. TRULICITY [Concomitant]
     Active Substance: DULAGLUTIDE
     Indication: Diabetes mellitus
  45. VICTOZA [Concomitant]
     Active Substance: LIRAGLUTIDE
  46. CIALIS [Concomitant]
     Active Substance: TADALAFIL
  47. VIAGRA [Concomitant]
     Active Substance: SILDENAFIL CITRATE
  48. DIBUCAINE [Concomitant]
     Active Substance: DIBUCAINE
  49. BACLOFEN [Concomitant]
     Active Substance: BACLOFEN
  50. BENZONATATE [Concomitant]
     Active Substance: BENZONATATE
  51. DEXAMETHASONE [Concomitant]
     Active Substance: DEXAMETHASONE
  52. TRAMADOL [Concomitant]
     Active Substance: TRAMADOL
  53. NIFEDIPINE [Concomitant]
     Active Substance: NIFEDIPINE
  54. LEVITRA [Concomitant]
     Active Substance: VARDENAFIL HYDROCHLORIDE
  55. HYDROCHLOROTHIAZIDE [Concomitant]
     Active Substance: HYDROCHLOROTHIAZIDE
  56. LANCET [Concomitant]
  57. GLIMEPIRIDE [Concomitant]
     Active Substance: GLIMEPIRIDE
     Indication: Diabetes mellitus
  58. METRONIDAZOLE [Concomitant]
     Active Substance: METRONIDAZOLE
  59. LIRAGLUTIDE [Concomitant]
     Active Substance: LIRAGLUTIDE
  60. METOPROLOL SUCCINATE [Concomitant]
     Active Substance: METOPROLOL SUCCINATE
     Indication: Blood pressure measurement
  61. OXYCODONE [Concomitant]
     Active Substance: OXYCODONE
     Indication: Pain
     Dosage: 10/135 MG
  62. ATENOLOL [Concomitant]
     Active Substance: ATENOLOL
     Indication: Blood pressure measurement
  63. PRAVASTATIN [Concomitant]
     Active Substance: PRAVASTATIN
     Indication: Blood cholesterol
  64. METFORMIN [Concomitant]
     Active Substance: METFORMIN HYDROCHLORIDE
     Indication: Diabetes mellitus
     Dates: start: 2012
  65. PRAVACHOL [Concomitant]
     Active Substance: PRAVASTATIN SODIUM
     Route: 048
     Dates: start: 20161126
  66. GLIPIZIDE [Concomitant]
     Active Substance: GLIPIZIDE
     Indication: Pain
  67. TADALAFIL [Concomitant]
     Active Substance: TADALAFIL
     Indication: Prostate infection
  68. TAMSULOSIN [Concomitant]
     Active Substance: TAMSULOSIN
     Indication: Prostate infection
  69. LISINOPRIL [Concomitant]
     Active Substance: LISINOPRIL
     Indication: Blood pressure measurement
  70. ACETAMINOPHEN\OXYCODONE HYDROCHLORIDE [Concomitant]
     Active Substance: ACETAMINOPHEN\OXYCODONE HYDROCHLORIDE
     Indication: Pain
  71. LINZESS [Concomitant]
     Active Substance: LINACLOTIDE
     Indication: Constipation
  72. BASAGLAR [Concomitant]
     Active Substance: INSULIN GLARGINE
     Indication: Diabetes mellitus
  73. CLINDAMYCIN [Concomitant]
     Active Substance: CLINDAMYCIN
     Indication: Biopsy rectum
  74. CANAGLIFLOZIN [Concomitant]
     Active Substance: CANAGLIFLOZIN

REACTIONS (16)
  - Fournier^s gangrene [Unknown]
  - Sepsis [Unknown]
  - Perineal pain [Unknown]
  - Testicular pain [Unknown]
  - Rectal abscess [Unknown]
  - Scrotal swelling [Unknown]
  - Genital lesion [Unknown]
  - Debridement [Unknown]
  - Scrotal gangrene [Unknown]
  - Proctalgia [Unknown]
  - Pain [Unknown]
  - Emotional distress [Unknown]
  - Genital abscess [Unknown]
  - Anal abscess [Unknown]
  - Stress [Unknown]
  - Depression [Unknown]

NARRATIVE: CASE EVENT DATE: 20161101
